FAERS Safety Report 5905535-8 (Version None)
Quarter: 2008Q4

REPORT INFORMATION
  Report Type: 
  Country: None (occurrence: None)
  Receive Date: 20081001
  Receipt Date: 20081001
  Transmission Date: 20090506
  Serious: No
  Sender: FDA-Public Use
  Company Number: None

PATIENT
  Age: 63 Year
  Sex: Male

DRUGS (1)
  1. ASPIRIN [Suspect]
     Indication: PAIN
     Dosage: 3000 MG EVERY DAY PO
     Route: 048
     Dates: start: 20080508

REACTIONS (2)
  - EPISTAXIS [None]
  - HAEMORRHAGE [None]
